FAERS Safety Report 6700865-4 (Version None)
Quarter: 2010Q2

REPORT INFORMATION
  Report Type: 
  Country: None (occurrence: None)
  Receive Date: 20100428
  Receipt Date: 20100426
  Transmission Date: 20101027
  Serious: Yes (Death, Other)
  Sender: FDA-Public Use
  Company Number: US-ELI_LILLY_AND_COMPANY-US201004000411

PATIENT
  Sex: Female

DRUGS (3)
  1. ALIMTA [Suspect]
     Indication: NON-SMALL CELL LUNG CANCER
     Dosage: 690 MG, UNK
     Dates: start: 20090101
  2. VITAMIN B-12 [Concomitant]
     Dosage: 1000 MG, UNK
     Route: 058
     Dates: start: 20091027
  3. CORTICOSTEROIDS [Concomitant]
     Dosage: 4 MG, UNK
     Dates: start: 20090501

REACTIONS (2)
  - DEATH [None]
  - MUCOSAL INFLAMMATION [None]
